FAERS Safety Report 7012104-8 (Version None)
Quarter: 2010Q3

REPORT INFORMATION
  Report Type: 
  Country: None (occurrence: None)
  Receive Date: 20100924
  Receipt Date: 20100913
  Transmission Date: 20110219
  Serious: Yes (Hospitalization)
  Sender: FDA-Public Use
  Company Number: CA-JNJFOC-20100904865

PATIENT
  Sex: Male

DRUGS (4)
  1. REMICADE [Suspect]
     Indication: CROHN'S DISEASE
     Route: 042
  2. REMICADE [Suspect]
     Route: 042
  3. PROZAC [Concomitant]
  4. ENTOCORT EC [Concomitant]

REACTIONS (3)
  - IMPAIRED HEALING [None]
  - INTESTINAL RESECTION [None]
  - POST PROCEDURAL INFECTION [None]
